FAERS Safety Report 5661507-2 (Version None)
Quarter: 2008Q1

REPORT INFORMATION
  Report Type: 
  Country: None (occurrence: None)
  Receive Date: 20080312
  Receipt Date: 20080305
  Transmission Date: 20080703
  Serious: Yes (Hospitalization)
  Sender: FDA-Public Use
  Company Number: JO-ROCHE-548806

PATIENT
  Sex: Male

DRUGS (1)
  1. XELODA [Suspect]
     Dosage: FOR 14 DAYS WITH ONE WEEK REST.
     Route: 048
     Dates: start: 20080105

REACTIONS (1)
  - CROHN'S DISEASE [None]
